FAERS Safety Report 6708382-2 (Version None)
Quarter: 2010Q2

REPORT INFORMATION
  Report Type: 
  Country: None (occurrence: None)
  Receive Date: 20100503
  Receipt Date: 20090604
  Transmission Date: 20101027
  Serious: No
  Sender: FDA-Public Use
  Company Number: US-ASTRAZENECA-2009UW14212

PATIENT
  Age: 66 Year
  Sex: Female
  Weight: 61.2 kg

DRUGS (5)
  1. NEXIUM [Suspect]
     Indication: GASTRIC ULCER
     Route: 048
     Dates: start: 20090522
  2. CLONIDINE [Concomitant]
  3. CLONAZEPAM [Concomitant]
  4. FLUTICASONE PROPIONATE [Concomitant]
  5. FLOVENT [Concomitant]

REACTIONS (4)
  - ABDOMINAL PAIN [None]
  - CONSTIPATION [None]
  - DIARRHOEA [None]
  - DRUG ADMINISTRATION ERROR [None]
